FAERS Safety Report 21601470 (Version 1)
Quarter: 2022Q4

REPORT INFORMATION
  Report Type: Other
  Country: US (occurrence: None)
  Receive Date: 20221116
  Receipt Date: 20221116
  Transmission Date: 20230112
  Serious: Yes (Other)
  Sender: FDA-Public Use
  Company Number: US-ROCHE-3217746

PATIENT
  Age: 74 Year
  Sex: Female

DRUGS (24)
  1. OCREVUS [Suspect]
     Active Substance: OCRELIZUMAB
     Indication: Primary progressive multiple sclerosis
     Dosage: YES
     Route: 042
     Dates: start: 202201
  2. ALL DAY ALLERGY [Concomitant]
     Active Substance: CETIRIZINE HYDROCHLORIDE
     Route: 048
  3. ALPRAZOLAM [Concomitant]
     Active Substance: ALPRAZOLAM
  4. AZITHROMYCIN [Concomitant]
     Active Substance: AZITHROMYCIN
     Dates: start: 20200311
  5. ASPIRIN [Concomitant]
     Active Substance: ASPIRIN
  6. BACLOFEN [Concomitant]
     Active Substance: BACLOFEN
  7. BACTRIM [Concomitant]
     Active Substance: SULFAMETHOXAZOLE\TRIMETHOPRIM
  8. BISOPROLOL FUMARATE [Concomitant]
     Active Substance: BISOPROLOL FUMARATE
  9. CELECOXIB [Concomitant]
     Active Substance: CELECOXIB
     Route: 048
  10. VITAMIN D3 [Concomitant]
     Active Substance: CHOLECALCIFEROL
  11. CYCLOBENZAPRINE [Concomitant]
     Active Substance: CYCLOBENZAPRINE
  12. CYPROHEPTADINE [Concomitant]
     Active Substance: CYPROHEPTADINE
  13. DICYCLOMINE [Concomitant]
     Active Substance: DICYCLOMINE HYDROCHLORIDE
  14. DOXYCYCLINE [Concomitant]
     Active Substance: DOXYCYCLINE
  15. FENTANYL [Concomitant]
     Active Substance: FENTANYL
  16. LANSOPRAZOLE [Concomitant]
     Active Substance: LANSOPRAZOLE
  17. MACROBID [Concomitant]
     Active Substance: NITROFURANTOIN\NITROFURANTOIN MONOHYDRATE
  18. ONDANSETRON [Concomitant]
     Active Substance: ONDANSETRON
  19. OXYBUTYNIN [Concomitant]
     Active Substance: OXYBUTYNIN
  20. PLAVIX [Concomitant]
     Active Substance: CLOPIDOGREL BISULFATE
  21. PREGABALIN [Concomitant]
     Active Substance: PREGABALIN
  22. PROVIGIL [Concomitant]
     Active Substance: MODAFINIL
  23. TOPIRAMATE [Concomitant]
     Active Substance: TOPIRAMATE
     Route: 048
  24. TRAZODONE [Concomitant]
     Active Substance: TRAZODONE HYDROCHLORIDE
     Route: 048

REACTIONS (6)
  - Fall [Unknown]
  - Hip fracture [Recovered/Resolved]
  - Pneumonia [Recovered/Resolved]
  - Body height decreased [Unknown]
  - Weight decreased [Unknown]
  - Tremor [Unknown]

NARRATIVE: CASE EVENT DATE: 20221001
